FAERS Safety Report 10654053 (Version 1)
Quarter: 2014Q4

REPORT INFORMATION
  Report Type: Spontaneous
  Country: US (occurrence: None)
  Receive Date: 20141212
  Receipt Date: 20141212
  Transmission Date: 20150529
  Serious: Yes (Hospitalization, Other)
  Sender: FDA-Public Use
  Company Number: 2014/091

PATIENT
  Age: 9 Year
  Sex: Male

DRUGS (2)
  1. PHENOBARBITAL. [Suspect]
     Active Substance: PHENOBARBITAL
  2. VALPROIC ACID. [Suspect]
     Active Substance: VALPROIC ACID
     Dosage: APPROXIMATELY 3 WEEKS

REACTIONS (3)
  - Infection [None]
  - Drug reaction with eosinophilia and systemic symptoms [None]
  - Hypereosinophilic syndrome [None]
